FAERS Safety Report 5234901-1 (Version None)
Quarter: 2007Q1

REPORT INFORMATION
  Report Type: 
  Country: None (occurrence: None)
  Receive Date: 20070209
  Receipt Date: 20070129
  Transmission Date: 20070707
  Serious: Yes (Other)
  Sender: FDA-Public Use
  Company Number: FR-PFIZER INC-2007008733

PATIENT
  Age: 65 Year
  Sex: Male

DRUGS (2)
  1. SUTENT [Suspect]
     Indication: RENAL CANCER METASTATIC
     Dosage: DAILY DOSE:50MG
  2. DRUG, UNSPECIFIED [Concomitant]

REACTIONS (4)
  - BLOOD AMYLASE INCREASED [None]
  - CELL DEATH [None]
  - CHOLESTASIS [None]
  - LIPASE INCREASED [None]
